FAERS Safety Report 5333128-2 (Version None)
Quarter: 2007Q2

REPORT INFORMATION
  Report Type: 
  Country: None (occurrence: None)
  Receive Date: 20070521
  Receipt Date: 20070521
  Transmission Date: 20071010
  Serious: Yes (Other)
  Sender: FDA-Public Use
  Company Number: None

PATIENT
  Age: 39 Year
  Sex: Female
  Weight: 65.7716 kg

DRUGS (1)
  1. IBUPROFEN [Suspect]
     Indication: INTERVERTEBRAL DISC PROTRUSION
     Dosage: (DURATION: ONE TIME DOSE OF 400MG)
     Dates: start: 20061031, end: 20061031

REACTIONS (5)
  - ANXIETY [None]
  - BLOOD PRESSURE INCREASED [None]
  - DIZZINESS [None]
  - HEART RATE INCREASED [None]
  - VISION BLURRED [None]
